FAERS Safety Report 8996735 (Version 1)
Quarter: 2012Q4

REPORT INFORMATION
  Report Type: Spontaneous
  Country: DE (occurrence: None)
  Receive Date: 20121220
  Receipt Date: 20121220
  Transmission Date: 20130627
  Serious: Yes (Other)
  Sender: FDA-Public Use
  Company Number: 2012-21974

PATIENT
  Sex: Male
  Weight: 80 kg

DRUGS (1)
  1. ZOLPIDEM TARTRATE (UNKNOWN) (ZOLPIDEM TARTRATE) UNK, UNKUNK [Suspect]

REACTIONS (2)
  - Dependence [None]
  - Overdose [None]
